FAERS Safety Report 6058061-2 (Version None)
Quarter: 2009Q1

REPORT INFORMATION
  Report Type: 
  Country: None (occurrence: None)
  Receive Date: 20090127
  Receipt Date: 20090113
  Transmission Date: 20090719
  Serious: No
  Sender: FDA-Public Use
  Company Number: 060004K08USA

PATIENT
  Age: 26 Year
  Sex: Female

DRUGS (1)
  1. SEROPHENE [Suspect]
     Indication: ANOVULATORY CYCLE
     Dosage: 50; 100; 150
     Dates: start: 20070101

REACTIONS (1)
  - NO ADVERSE EVENT [None]
